FAERS Safety Report 9466114 (Version 1)
Quarter: 2013Q3

REPORT INFORMATION
  Report Type: Spontaneous
  Country: SE (occurrence: SE)
  Receive Date: 20130820
  Receipt Date: 20130820
  Transmission Date: 20140515
  Serious: Yes (Other)
  Sender: FDA-Public Use
  Company Number: PHHY2013SE089462

PATIENT
  Sex: Female

DRUGS (7)
  1. ACLASTA [Suspect]
     Indication: OSTEOPOROSIS
     Dosage: UNK UKN, UNK
     Route: 042
     Dates: start: 20130730
  2. BISOPROLOL [Concomitant]
     Dosage: 1.25 MG, UNK
  3. WARAN [Concomitant]
     Dosage: 0.21 UKN, UNK
  4. PREDNISOLON [Concomitant]
     Dosage: 0.5 UKN, UNK
  5. FURIX [Concomitant]
  6. ALLERGY MEDICATION [Concomitant]
     Indication: SEASONAL ALLERGY
  7. ALVEDON [Concomitant]

REACTIONS (7)
  - Diplopia [Not Recovered/Not Resolved]
  - Apathy [Not Recovered/Not Resolved]
  - Urticaria [Unknown]
  - Headache [Not Recovered/Not Resolved]
  - Somnolence [Not Recovered/Not Resolved]
  - Asthenia [Not Recovered/Not Resolved]
  - Malaise [Unknown]
